FAERS Safety Report 4502973-5 (Version None)
Quarter: 2004Q4

REPORT INFORMATION
  Report Type: 
  Country: None (occurrence: None)
  Receive Date: 20041117
  Receipt Date: 20041110
  Transmission Date: 20050328
  Serious: Yes (Hospitalization)
  Sender: FDA-Public Use
  Company Number: JP-BRISTOL-MYERS SQUIBB COMPANY-12763983

PATIENT
  Age: 63 Year
  Sex: Female

DRUGS (2)
  1. BRIPLATIN [Suspect]
     Indication: LUNG CARCINOMA CELL TYPE UNSPECIFIED RECURRENT
     Dosage: 1ST DOSE: 05-DEC-2000
     Route: 041
     Dates: start: 20010110, end: 20010110
  2. VINORELBINE [Suspect]
     Indication: LUNG CARCINOMA CELL TYPE UNSPECIFIED RECURRENT
     Dosage: 1ST DOSE: 05-DEC-2000
     Route: 041
     Dates: start: 20010117, end: 20010117

REACTIONS (2)
  - HEMIPLEGIA TRANSIENT [None]
  - WHITE BLOOD CELL COUNT DECREASED [None]
